FAERS Safety Report 8047859-7 (Version None)
Quarter: 2012Q1

REPORT INFORMATION
  Report Type: 
  Country: None (occurrence: None)
  Receive Date: 20120116
  Receipt Date: 20120112
  Transmission Date: 20120608
  Serious: Yes (Other)
  Sender: FDA-Public Use
  Company Number: GXKR2012DE000544

PATIENT

DRUGS (3)
  1. ENALAPRIL MALEATE [Interacting]
     Route: 048
  2. RASILEZ D [Suspect]
     Indication: HYPERTENSION
     Dosage: 300 MG, DAILY
     Route: 048
     Dates: start: 20090301, end: 20111215
  3. ASPIRIN [Interacting]
     Indication: NASOPHARYNGITIS
     Route: 048

REACTIONS (1)
  - RENAL FAILURE ACUTE [None]
